FAERS Safety Report 4513082-3 (Version None)
Quarter: 2004Q4

REPORT INFORMATION
  Report Type: 
  Country: None (occurrence: None)
  Receive Date: 20040928
  Receipt Date: 20040701
  Transmission Date: 20050328
  Serious: No
  Sender: FDA-Public Use
  Company Number: 04P-163-0265452-00

PATIENT
  Sex: Male

DRUGS (3)
  1. HUMIRA [Suspect]
     Indication: RHEUMATOID ARTHRITIS
     Dosage: 40 MG, 1 IN 2 WK, SUBCUTANEOUS
     Route: 058
     Dates: start: 20040608
  2. ESOMEPRAZOLE [Concomitant]
  3. METOPROLOL [Concomitant]

REACTIONS (2)
  - CONDITION AGGRAVATED [None]
  - OEDEMA PERIPHERAL [None]
